FAERS Safety Report 19990150 (Version 1)
Quarter: 2021Q4

REPORT INFORMATION
  Report Type: Spontaneous
  Country: US (occurrence: US)
  Receive Date: 20211022
  Receipt Date: 20211022
  Transmission Date: 20220303
  Serious: No
  Sender: FDA-Public Use
  Company Number: None

PATIENT
  Age: 37 Year
  Sex: Female
  Weight: 52.2 kg

DRUGS (4)
  1. IBRANCE [Suspect]
     Active Substance: PALBOCICLIB
     Indication: Breast cancer
     Dosage: ?          OTHER FREQUENCY:QD FOR 21/28 DAYS;
     Route: 048
     Dates: start: 20210804
  2. FENTANYL TRANSDERMAL SYSTEM [Concomitant]
     Active Substance: FENTANYL
  3. Fiber complete [Concomitant]
  4. Vitamin D3 1000IU [Concomitant]

REACTIONS (2)
  - Leukopenia [None]
  - Neutropenia [None]

NARRATIVE: CASE EVENT DATE: 20211022
